FAERS Safety Report 5949756-7 (Version None)
Quarter: 2008Q4

REPORT INFORMATION
  Report Type: 
  Country: None (occurrence: None)
  Receive Date: 20081112
  Receipt Date: 20081101
  Transmission Date: 20090506
  Serious: Yes (Other)
  Sender: FDA-Public Use
  Company Number: US-BAYER-200837500NA

PATIENT
  Age: 53 Year
  Sex: Female

DRUGS (9)
  1. CAMPATH [Suspect]
     Indication: MULTIPLE SCLEROSIS RELAPSE
     Dates: start: 20061201, end: 20061201
  2. CAMPATH [Suspect]
     Dates: start: 20071201, end: 20071201
  3. GLATIRAMER ACETATE + METHOTREXATE [Concomitant]
     Dates: end: 20050101
  4. SOLU-MEDROL [Concomitant]
     Indication: PROGRESSIVE RELAPSING MULTIPLE SCLEROSIS
     Route: 042
     Dates: start: 20060101, end: 20060101
  5. SOLU-MEDROL [Concomitant]
     Dates: start: 20070101, end: 20070101
  6. DAPSONE [Concomitant]
     Indication: ANTIFUNGAL PROPHYLAXIS
     Dates: start: 20060101, end: 20070101
  7. DAPSONE [Concomitant]
     Dates: start: 20070101, end: 20080101
  8. ACYCLOVIR [Concomitant]
     Indication: INFECTION PROPHYLAXIS
     Dates: start: 20060101, end: 20070101
  9. ACYCLOVIR [Concomitant]
     Dates: start: 20070101, end: 20080101

REACTIONS (3)
  - DEPRESSION [None]
  - HISTOPLASMOSIS DISSEMINATED [None]
  - STATUS EPILEPTICUS [None]
